FAERS Safety Report 16435302 (Version 2)
Quarter: 2019Q2

REPORT INFORMATION
  Report Type: Report from Study
  Country: DE (occurrence: DE)
  Receive Date: 20190614
  Receipt Date: 20190621
  Transmission Date: 20190711
  Serious: Yes (Death, Hospitalization, Other)
  Sender: FDA-Public Use
  Company Number: DE-BRISTOL-MYERS SQUIBB COMPANY-BMS-2019-057482

PATIENT
  Age: 80 Year
  Sex: Male
  Weight: 77.9 kg

DRUGS (13)
  1. FUROSEMIDE. [Concomitant]
     Active Substance: FUROSEMIDE
     Indication: END STAGE RENAL DISEASE
     Dosage: 500 MILLIGRAM, QD
     Route: 048
     Dates: start: 20171018
  2. COLECALCIFEROL [Concomitant]
     Active Substance: CHOLECALCIFEROL
     Indication: VITAMIN D DEFICIENCY
     Dosage: 20000 INTERNATIONAL UNIT, Q2MO
     Route: 048
     Dates: start: 20190124
  3. ZOPICLON [Concomitant]
     Active Substance: ZOPICLONE
     Indication: SLEEP DISORDER
     Dosage: 7.5 MILLIGRAM, PRN
     Route: 048
     Dates: start: 20170717
  4. L-THYROXIN [LEVOTHYROXINE SODIUM] [Concomitant]
     Indication: GOITRE
     Dosage: 100 MILLIGRAM, QD
     Route: 048
     Dates: start: 20160307
  5. LOTRICOMB [Concomitant]
     Active Substance: BETAMETHASONE DIPROPIONATE\CLOTRIMAZOLE
     Indication: ECZEMA
     Dosage: 50 GRAM, PRN
     Route: 061
     Dates: start: 20180104
  6. VIANI [Concomitant]
     Active Substance: FLUTICASONE PROPIONATE\SALMETEROL XINAFOATE
     Indication: COUGH
     Dosage: UNK, PRN
     Route: 048
     Dates: start: 20190426
  7. RENVELA [Concomitant]
     Active Substance: SEVELAMER CARBONATE
     Indication: END STAGE RENAL DISEASE
     Dosage: 3200 MILLIGRAM, QD
     Route: 048
     Dates: start: 20190220
  8. APIXABAN [Suspect]
     Active Substance: APIXABAN
     Indication: CEREBROVASCULAR ACCIDENT PROPHYLAXIS
     Dosage: 2.5 MILLIGRAM, BID
     Route: 048
     Dates: start: 20180417, end: 20190516
  9. ALDACTONE [Concomitant]
     Active Substance: SPIRONOLACTONE
     Indication: END STAGE RENAL DISEASE
     Dosage: 25 MILLIGRAM, QWK
     Route: 048
     Dates: start: 20171023
  10. CARVEDILOL. [Concomitant]
     Active Substance: CARVEDILOL
     Indication: HYPERTENSION
     Dosage: 37.5 MILLIGRAM, QD
     Route: 048
     Dates: start: 20180829
  11. SIMVASTATIN. [Concomitant]
     Active Substance: SIMVASTATIN
     Indication: HYPERCHOLESTEROLAEMIA
     Dosage: 20 MILLIGRAM, QD
     Route: 048
     Dates: start: 20170324
  12. XELEVIA [Concomitant]
     Active Substance: SITAGLIPTIN PHOSPHATE
     Indication: TYPE 2 DIABETES MELLITUS
     Dosage: 25 MILLIGRAM, QD
     Route: 048
     Dates: start: 20160108
  13. ALLOPURINOL. [Concomitant]
     Active Substance: ALLOPURINOL
     Indication: GOUT
     Dosage: 100 MILLIGRAM, QD
     Route: 048
     Dates: start: 20171106

REACTIONS (2)
  - Cervical vertebral fracture [Fatal]
  - Fall [Unknown]

NARRATIVE: CASE EVENT DATE: 20190516
